FAERS Safety Report 8883146 (Version 1)
Quarter: 2012Q4

REPORT INFORMATION
  Report Type: 
  Country: SE (occurrence: SE)
  Receive Date: 20121104
  Receipt Date: 20121104
  Transmission Date: 20130627
  Serious: Yes (Hospitalization, Other)
  Sender: FDA-Public Use
  Company Number: SE-JNJFOC-20120813692

PATIENT
  Age: 63 Year
  Sex: Male

DRUGS (10)
  1. XARELTO [Suspect]
     Indication: THROMBOSIS PROPHYLAXIS
     Route: 048
     Dates: start: 20120626
  2. XARELTO [Suspect]
     Indication: HIP ARTHROPLASTY
     Route: 048
     Dates: start: 20120626
  3. DOLCONTIN [Concomitant]
     Route: 065
  4. LASIX RETARD [Concomitant]
     Route: 065
  5. CYKLOKAPRON [Concomitant]
     Route: 042
  6. PARACETAMOL [Concomitant]
     Route: 065
  7. AMLODIPINE [Concomitant]
     Route: 065
  8. LOSARTAN [Concomitant]
     Route: 065
  9. GLIBENCLAMIDE [Concomitant]
     Route: 065
  10. BISOPROLOL [Concomitant]
     Route: 065

REACTIONS (2)
  - Haemorrhage [Recovered/Resolved]
  - Compartment syndrome [Unknown]
